FAERS Safety Report 4703013-5 (Version None)
Quarter: 2005Q2

REPORT INFORMATION
  Report Type: 
  Country: None (occurrence: None)
  Receive Date: 20050628
  Receipt Date: 20050628
  Transmission Date: 20051028
  Serious: Yes (Life-Threatening, Hospitalization, Disabling)
  Sender: FDA-Public Use
  Company Number: None

PATIENT
  Age: 75 Year
  Sex: Female
  Weight: 72.5755 kg

DRUGS (1)
  1. GENTAMICIN [Suspect]
     Indication: BACTERIA BLOOD IDENTIFIED
     Dosage: EVERY 4 HOURS IN IV
     Route: 042
     Dates: start: 20041118, end: 20041231

REACTIONS (4)
  - BALANCE DISORDER [None]
  - EYE MOVEMENT DISORDER [None]
  - RENAL DISORDER [None]
  - TINNITUS [None]
